FAERS Safety Report 6903738-7 (Version None)
Quarter: 2010Q3

REPORT INFORMATION
  Report Type: 
  Country: None (occurrence: None)
  Receive Date: 20100804
  Receipt Date: 20081215
  Transmission Date: 20110219
  Serious: No
  Sender: FDA-Public Use
  Company Number: US-PFIZER INC-2008156251

PATIENT

DRUGS (3)
  1. LYRICA [Suspect]
  2. LORTAB [Suspect]
  3. NSAID'S [Suspect]

REACTIONS (1)
  - DRUG SCREEN FALSE POSITIVE [None]
